FAERS Safety Report 7402181-4 (Version None)
Quarter: 2011Q2

REPORT INFORMATION
  Report Type: 
  Country: None (occurrence: None)
  Receive Date: 20110408
  Receipt Date: 20110330
  Transmission Date: 20111010
  Serious: Yes (Death)
  Sender: FDA-Public Use
  Company Number: JP-ASTELLAS-2011JP000735

PATIENT
  Sex: Female
  Weight: 60 kg

DRUGS (12)
  1. TARGOCID [Suspect]
     Dosage: 400 MG, UID/QD
     Route: 041
     Dates: start: 20101117, end: 20101117
  2. NOVOLIN R [Concomitant]
     Indication: DIABETES MELLITUS
     Dosage: 10 IU, UNKNOWN/D
     Route: 041
     Dates: start: 20100930, end: 20101119
  3. CERONEED [Suspect]
     Indication: INFECTION
     Dosage: 1 G, BID
     Route: 041
     Dates: start: 20101112, end: 20101117
  4. REPLAS [Concomitant]
     Indication: FLUID REPLACEMENT
     Dosage: 500 ML, UID/QD
     Route: 041
     Dates: start: 20101015, end: 20101115
  5. FUNGUARD [Suspect]
     Indication: FUNGAL INFECTION
     Dosage: 150 MG, UID/QD
     Route: 041
     Dates: start: 20101112, end: 20101115
  6. TARGOCID [Suspect]
     Dosage: 600 MG, BID
     Route: 041
     Dates: start: 20101116, end: 20101116
  7. TARGOCID [Suspect]
     Indication: STAPHYLOCOCCAL SEPSIS
     Dosage: 200 MG, BID
     Route: 041
     Dates: start: 20101113, end: 20101113
  8. TARGOCID [Suspect]
     Dosage: 800 MG, UNKNOWN/D
     Route: 041
     Dates: start: 20101115, end: 20101115
  9. LASIX [Concomitant]
     Indication: POLYURIA
     Dosage: 30 MG, UID/QD
     Route: 042
     Dates: start: 20100930, end: 20101119
  10. TARGOCID [Suspect]
     Dosage: 200 MG, UID/QD
     Route: 041
     Dates: start: 20101114, end: 20101114
  11. HARTMAN G-3 [Concomitant]
     Indication: FLUID REPLACEMENT
     Dosage: 500 ML, BID
     Route: 041
     Dates: start: 20101112, end: 20101115
  12. VOLTAREN [Concomitant]
     Indication: ANALGESIC THERAPY
     Dosage: UNK
     Route: 054
     Dates: start: 20101112, end: 20101117

REACTIONS (1)
  - RENAL FAILURE ACUTE [None]
